FAERS Safety Report 6910610-5 (Version None)
Quarter: 2010Q3

REPORT INFORMATION
  Report Type: 
  Country: None (occurrence: None)
  Receive Date: 20100806
  Receipt Date: 20100729
  Transmission Date: 20110219
  Serious: Yes (Other)
  Sender: FDA-Public Use
  Company Number: CH-SANOFI-AVENTIS-2010SA044761

PATIENT
  Age: 31 Year
  Sex: Female

DRUGS (6)
  1. CLEXANE [Suspect]
     Dates: start: 20090101, end: 20100403
  2. ASPIRIN [Suspect]
     Dates: start: 20091117, end: 20100403
  3. METOPROLOL SUCCINATE [Suspect]
     Dates: start: 20090101
  4. LIQUEMINE [Suspect]
     Dates: start: 20100403, end: 20100416
  5. PANTOZOL [Suspect]
  6. CORONARY VASODILATORS [Suspect]
     Dates: end: 20090101

REACTIONS (2)
  - DRUG EXPOSURE DURING PREGNANCY [None]
  - FOETAL GROWTH RESTRICTION [None]
